FAERS Safety Report 23375537 (Version 2)
Quarter: 2024Q1

REPORT INFORMATION
  Report Type: Spontaneous
  Country: IN (occurrence: IN)
  Receive Date: 20240107
  Receipt Date: 20240112
  Transmission Date: 20240409
  Serious: Yes (Other)
  Sender: FDA-Public Use
  Company Number: IN-SANDOZ-SDZ2023IN073605

PATIENT
  Age: 37 Year
  Sex: Male

DRUGS (2)
  1. TERBINAFINE [Suspect]
     Active Substance: TERBINAFINE
     Indication: Tinea cruris
     Dosage: 250 MG, QD (FOR 14 DAYS)
     Route: 048
  2. TERBINAFINE [Suspect]
     Active Substance: TERBINAFINE
     Dosage: 250 MG, 2 DOSES
     Route: 048

REACTIONS (1)
  - Myositis [Recovering/Resolving]
